FAERS Safety Report 7007670-2 (Version None)
Quarter: 2010Q3

REPORT INFORMATION
  Report Type: 
  Country: None (occurrence: None)
  Receive Date: 20100922
  Receipt Date: 20100915
  Transmission Date: 20110219
  Serious: Yes (Hospitalization)
  Sender: FDA-Public Use
  Company Number: US-PFIZER INC-2010104258

PATIENT
  Sex: Male
  Weight: 77.5 kg

DRUGS (27)
  1. BLINDED *NO SUBJECT DRUG [Suspect]
     Indication: PROSTATE CANCER
     Dosage: 37.5 MG, 1X/DAY
     Route: 048
     Dates: start: 20091118, end: 20100803
  2. BLINDED *PLACEBO [Suspect]
     Indication: PROSTATE CANCER
     Dosage: 37.5 MG, 1X/DAY
     Route: 048
     Dates: start: 20091118, end: 20100803
  3. SUNITINIB MALATE [Suspect]
     Indication: PROSTATE CANCER
     Dosage: 37.5 MG, 1X/DAY
     Route: 048
     Dates: start: 20091118, end: 20100803
  4. PREDNISONE [Suspect]
     Indication: PROSTATE CANCER
     Dosage: 5 MG, 2X/DAY
     Route: 048
     Dates: start: 20091118, end: 20100803
  5. ZOFRAN [Concomitant]
     Indication: NAUSEA
     Dosage: 8 MG, TID, PRN
     Route: 048
     Dates: start: 20090624
  6. ZOFRAN [Concomitant]
     Indication: VOMITING
  7. MS CONTIN [Concomitant]
     Indication: PAIN
     Dosage: 15 MG, 2X/DAY
     Route: 048
     Dates: start: 20081111
  8. LEXAPRO [Concomitant]
     Indication: ANXIETY
     Dosage: 10 MG, 1X/DAY
     Route: 048
     Dates: start: 20080703
  9. SPIRONOLACTONE [Concomitant]
     Indication: OEDEMA
     Dosage: 25 MG, 3X/DAY
     Route: 048
     Dates: start: 20090902
  10. LASIX [Concomitant]
     Indication: OEDEMA
     Dosage: 40 MG, 1X/DAY
     Route: 048
     Dates: start: 20090911
  11. COREG [Concomitant]
     Indication: HYPERTENSION
     Dosage: 3.125 MG, 1X/DAY
     Route: 048
     Dates: start: 20080703
  12. ACETAMINOPHEN AND OXYCODONE HCL [Concomitant]
     Indication: BREAKTHROUGH PAIN
     Dosage: 5/325MG, 1-2 TAB, 4-6HS PRN
     Route: 048
     Dates: start: 20080312
  13. LORAZEPAM [Concomitant]
     Indication: INSOMNIA
     Dosage: 1TAB, QHS
     Route: 048
     Dates: start: 20080311
  14. REMERON [Concomitant]
     Indication: INSOMNIA
     Dosage: 30 MG, QHS
     Route: 048
     Dates: start: 20080822
  15. FLORADIX FORMULA [Concomitant]
     Indication: MEDICAL DIET
     Dosage: 375 MG, 1X/DAY
     Route: 048
     Dates: start: 20090902
  16. VITAMIN B COMPLEX CAP [Concomitant]
     Indication: MEDICAL DIET
     Dosage: 1 TAB, DAILY
     Route: 048
     Dates: start: 20080910
  17. FISH OIL [Concomitant]
     Indication: MEDICAL DIET
     Dosage: 1000 MG, 2X/DAY
     Route: 048
     Dates: start: 20080910
  18. MUCINEX [Concomitant]
     Indication: SINUS OPERATION
     Dosage: 300 MG, 2X/DAY
     Route: 048
     Dates: start: 20100304
  19. MUCINEX [Concomitant]
     Indication: COUGH
  20. ALBUTEROL [Concomitant]
     Indication: COUGH
     Dosage: 0.83%,25/3MG/ML, 2X/DAY
     Route: 055
     Dates: start: 20100304
  21. LEVAQUIN [Concomitant]
     Dosage: 500 MG, QDX14
     Route: 048
     Dates: start: 20100308
  22. METHYLDOPA [Concomitant]
     Indication: COUGH
     Dosage: Q6HS, PRN
     Route: 048
     Dates: start: 20100308
  23. AMITRIPTYLINE [Concomitant]
     Indication: NEUROPATHY PERIPHERAL
     Dosage: 10 MG, QHS
     Route: 048
     Dates: start: 20100224
  24. TAMSULOSIN [Concomitant]
     Indication: POLYURIA
     Dosage: 0.4 MG, 1X/DAY
     Route: 048
     Dates: start: 20100224
  25. COLACE [Concomitant]
     Indication: CONSTIPATION
     Dosage: 100 MG, 2X/DAY
     Route: 048
     Dates: start: 20100722, end: 20100808
  26. COLACE [Concomitant]
     Dosage: 100 MG, 3X/DAY
     Route: 048
     Dates: start: 20100809
  27. SENNA [Concomitant]
     Indication: CONSTIPATION
     Dosage: 81 MG, 3X/DAY
     Route: 048
     Dates: start: 20100809

REACTIONS (1)
  - DISSEMINATED INTRAVASCULAR COAGULATION [None]
